FAERS Safety Report 8923143 (Version 2)
Quarter: 2012Q4

REPORT INFORMATION
  Report Type: 
  Country: US (occurrence: US)
  Receive Date: 20121123
  Receipt Date: 20121213
  Transmission Date: 20130627
  Serious: Yes (Other)
  Sender: FDA-Public Use
  Company Number: US-PFIZER INC-2012292936

PATIENT
  Age: 52 Year
  Sex: Male
  Weight: 85.71 kg

DRUGS (4)
  1. PRISTIQ [Suspect]
     Indication: OBSESSIVE-COMPULSIVE DISORDER
     Dosage: 50 mg, 1x/day
     Route: 048
  2. PRISTIQ [Suspect]
     Indication: DEPRESSION
     Dosage: 100 mg, 1x/day, every morning
     Route: 048
     Dates: start: 201211, end: 20121119
  3. CELEXA [Concomitant]
     Dosage: 40 mg, UNK
  4. SEROQUEL [Concomitant]
     Dosage: UNK

REACTIONS (4)
  - Blood pressure increased [Not Recovered/Not Resolved]
  - Blood pressure systolic increased [Recovered/Resolved]
  - Abnormal dreams [Not Recovered/Not Resolved]
  - Nausea [Not Recovered/Not Resolved]
